FAERS Safety Report 8292887 (Version 2)
Quarter: 2013Q4

REPORT INFORMATION
  Report Type: Spontaneous
  Country: US (occurrence: US)
  Receive Date: 20111215
  Receipt Date: 20131210
  Transmission Date: 20140711
  Serious: Yes (Other)
  Sender: FDA-Public Use
  Company Number: US-ROCHE-1020705

PATIENT
  Age: 87 Year
  Sex: Female
  Weight: 56.75 kg

DRUGS (2)
  1. XOLAIR [Suspect]
     Indication: ASTHMA
     Route: 030
     Dates: start: 20060320, end: 20111207
  2. XOLAIR [Suspect]
     Route: 065
     Dates: start: 20131118

REACTIONS (3)
  - Hypertension [Unknown]
  - Arrhythmia [Unknown]
  - Foot operation [Unknown]
